FAERS Safety Report 14757470 (Version 3)
Quarter: 2018Q3

REPORT INFORMATION
  Report Type: Report from Study
  Country: IT (occurrence: IT)
  Receive Date: 20180413
  Receipt Date: 20180705
  Transmission Date: 20181010
  Serious: Yes (Hospitalization)
  Sender: FDA-Public Use
  Company Number: IT-PFIZER INC-2018151406

PATIENT
  Age: 91 Year
  Sex: Male

DRUGS (10)
  1. SELOKEN [Suspect]
     Active Substance: METOPROLOL
     Indication: ARRHYTHMIA
     Dosage: 100 MG, CYCLIC (EVERY CYCLE)
     Route: 048
     Dates: start: 20000101, end: 20000101
  2. TRIATEC (RAMIPRIL) [Suspect]
     Active Substance: RAMIPRIL
     Indication: HYPERTENSION
     Dosage: 5 MG, CYCLIC (EVERY CYCLE)
     Route: 048
     Dates: start: 20000101, end: 20000101
  3. SELOKEN [Suspect]
     Active Substance: METOPROLOL
     Dosage: 100 MG, CYCLIC (EVERY CYCLE)
     Route: 048
     Dates: start: 20170209, end: 20170209
  4. LASIX [Suspect]
     Active Substance: FUROSEMIDE
     Indication: CHRONIC KIDNEY DISEASE
     Dosage: 500 MG, CYCLIC (EVERY CYCLE)
     Route: 048
     Dates: start: 20000101, end: 20000101
  5. LASIX [Suspect]
     Active Substance: FUROSEMIDE
     Dosage: 500 MG, CYCLIC (EVERY CYCLE)
     Route: 048
     Dates: start: 20170209, end: 20170209
  6. CLOPIXOL [Suspect]
     Active Substance: ZUCLOPENTHIXOL
     Indication: SCHIZOPHRENIA
     Dosage: 25 MG, CYCLIC (EVERY CYCLE)
     Route: 048
     Dates: start: 20160101, end: 20160101
  7. DELORAZEPAM [Suspect]
     Active Substance: DELORAZEPAM
     Indication: ANXIETY
     Dosage: 2 MG, CYCLIC (EVERY CYCLE)
     Route: 030
     Dates: start: 20160101, end: 20160101
  8. TRIATEC (RAMIPRIL) [Suspect]
     Active Substance: RAMIPRIL
     Dosage: 5 MG, CYCLIC (EVERY CYCLE)
     Route: 048
     Dates: start: 20170209, end: 20170209
  9. CLOPIXOL [Suspect]
     Active Substance: ZUCLOPENTHIXOL
     Dosage: 25 MG, CYCLIC (EVERY CYCLE)
     Route: 048
     Dates: start: 20170209, end: 20170209
  10. DELORAZEPAM [Suspect]
     Active Substance: DELORAZEPAM
     Dosage: 2 MG, CYCLIC (EVERY CYCLE)
     Route: 030
     Dates: start: 20170209, end: 20170209

REACTIONS (7)
  - Loss of consciousness [Recovering/Resolving]
  - Sepsis [None]
  - Muscle rigidity [Recovering/Resolving]
  - Cognitive disorder [None]
  - Haematuria [Recovering/Resolving]
  - Pneumonia [None]
  - Bronchopulmonary aspergillosis [None]

NARRATIVE: CASE EVENT DATE: 20170209
